FAERS Safety Report 9252866 (Version 3)
Quarter: 2013Q2

REPORT INFORMATION
  Report Type: Spontaneous
  Country: US (occurrence: US)
  Receive Date: 20130424
  Receipt Date: 20130528
  Transmission Date: 20140414
  Serious: No
  Sender: FDA-Public Use
  Company Number: US-009507513-1304USA010423

PATIENT
  Sex: Female
  Weight: 64.4 kg

DRUGS (3)
  1. CLARITIN [Suspect]
     Indication: SNEEZING
     Dosage: 10 MG, QD
     Route: 048
     Dates: start: 20130201, end: 20130320
  2. CLARITIN [Suspect]
     Indication: RHINORRHOEA
  3. CLARITIN [Suspect]
     Indication: NASAL CONGESTION

REACTIONS (2)
  - Drug ineffective [Unknown]
  - Off label use [Unknown]
